FAERS Safety Report 16721495 (Version 1)
Quarter: 2019Q3

REPORT INFORMATION
  Report Type: Spontaneous
  Country: US (occurrence: US)
  Receive Date: 20190820
  Receipt Date: 20190820
  Transmission Date: 20191005
  Serious: Yes (Other)
  Sender: FDA-Public Use
  Company Number: US-BIODELIVERY SCIENCES INTERNATIONAL-2018BDSI0438

PATIENT
  Age: 63 Year
  Sex: Female

DRUGS (5)
  1. GLUCOSE/CITRIC ACID/POTASSIUM/SODIUM/CHLORINE [Concomitant]
     Indication: MINERAL SUPPLEMENTATION
  2. NO DRUG NAME [Concomitant]
     Indication: DIURETIC THERAPY
  3. BUPRENORPHINE. [Suspect]
     Active Substance: BUPRENORPHINE
     Indication: PAIN
     Route: 002
     Dates: start: 20180719
  4. BUPRENORPHINE. [Suspect]
     Active Substance: BUPRENORPHINE
     Indication: PAIN
     Route: 062
  5. OXYCODONE [Concomitant]
     Active Substance: OXYCODONE
     Indication: PAIN
     Dosage: 5/325; 4-6 TIMES A DAY
     Route: 048
     Dates: start: 2014

REACTIONS (5)
  - Muscle spasms [Not Recovered/Not Resolved]
  - Oedema peripheral [Recovering/Resolving]
  - Intentional product misuse [Unknown]
  - Insomnia [Not Recovered/Not Resolved]
  - Drug withdrawal syndrome [Recovering/Resolving]

NARRATIVE: CASE EVENT DATE: 2018
